FAERS Safety Report 4353803-6 (Version None)
Quarter: 2004Q2

REPORT INFORMATION
  Report Type: 
  Country: None (occurrence: None)
  Receive Date: 20040505
  Receipt Date: 20040505
  Transmission Date: 20050107
  Serious: No
  Sender: FDA-Public Use
  Company Number: None

PATIENT
  Age: 78 Year
  Sex: Male
  Weight: 88.905 kg

DRUGS (4)
  1. LOVENOX [Suspect]
     Dosage: 90 MG SC Q 12 H
     Route: 058
     Dates: start: 20040123
  2. LOVENOX [Suspect]
     Dosage: 90 MG SC Q 12 H
     Route: 058
     Dates: start: 20040220
  3. NAFCILLIN SODIUM [Concomitant]
  4. ACETAMINOPHEN [Concomitant]

REACTIONS (2)
  - BLOOD PRESSURE DECREASED [None]
  - CATHETER SITE HAEMORRHAGE [None]
